FAERS Safety Report 9274782 (Version 1)
Quarter: 2013Q2

REPORT INFORMATION
  Report Type: Spontaneous
  Country: US (occurrence: None)
  Receive Date: 20130501
  Receipt Date: 20130501
  Transmission Date: 20140414
  Serious: Yes (Other)
  Sender: FDA-Public Use
  Company Number: None

PATIENT
  Age: 55 Year
  Sex: Female
  Weight: 82.56 kg

DRUGS (1)
  1. DUONEB [Suspect]

REACTIONS (3)
  - Palpitations [None]
  - Feeling jittery [None]
  - Product substitution issue [None]
